FAERS Safety Report 14032443 (Version 5)
Quarter: 2018Q1

REPORT INFORMATION
  Report Type: Report from Study
  Country: US (occurrence: US)
  Receive Date: 20171002
  Receipt Date: 20180213
  Transmission Date: 20180508
  Serious: Yes (Death, Hospitalization, Other)
  Sender: FDA-Public Use
  Company Number: US-GILEAD-2017-0294786

PATIENT
  Age: 72 Year
  Sex: Male

DRUGS (1)
  1. AMBRISENTAN [Suspect]
     Active Substance: AMBRISENTAN
     Indication: PRODUCT USED FOR UNKNOWN INDICATION
     Dosage: 5 MG, UNK
     Route: 065
     Dates: start: 20170216

REACTIONS (9)
  - Dyspnoea [Unknown]
  - Erythema [Unknown]
  - Critical illness [Not Recovered/Not Resolved]
  - Unevaluable event [Unknown]
  - Oxygen consumption increased [Not Recovered/Not Resolved]
  - Cough [Unknown]
  - Cardiac failure [Unknown]
  - Chronic obstructive pulmonary disease [Unknown]
  - Death [Fatal]
